FAERS Safety Report 5313914-5 (Version None)
Quarter: 2007Q2

REPORT INFORMATION
  Report Type: 
  Country: None (occurrence: None)
  Receive Date: 20070501
  Receipt Date: 20070427
  Transmission Date: 20071010
  Serious: Yes (Other)
  Sender: FDA-Public Use
  Company Number: 2007315090

PATIENT
  Age: 38 Year
  Sex: Female

DRUGS (2)
  1. NICORETTE [Suspect]
     Indication: SMOKING CESSATION THERAPY
     Route: 002
  2. NICORETTE NASAL SPRAY [Suspect]
     Indication: SMOKING CESSATION THERAPY
     Route: 045
     Dates: start: 20060101

REACTIONS (4)
  - DRUG INEFFECTIVE [None]
  - INTENTIONAL DRUG MISUSE [None]
  - NASAL CONGESTION [None]
  - SALIVARY GLAND CALCULUS [None]
